FAERS Safety Report 11167966 (Version 2)
Quarter: 2015Q2

REPORT INFORMATION
  Report Type: Spontaneous
  Country: JP (occurrence: JP)
  Receive Date: 20150605
  Receipt Date: 20150612
  Transmission Date: 20150821
  Serious: Yes (Other)
  Sender: FDA-Public Use
  Company Number: JP-ASTRAZENECA-2015SE53905

PATIENT
  Sex: Male

DRUGS (3)
  1. MULTIPLE DRUGS [Concomitant]
     Active Substance: UNSPECIFIED INGREDIENT
  2. CASODEX [Suspect]
     Active Substance: BICALUTAMIDE
     Route: 048
  3. CASODEX [Suspect]
     Active Substance: BICALUTAMIDE
     Route: 048

REACTIONS (1)
  - Rhabdomyolysis [Unknown]
